FAERS Safety Report 17238689 (Version 1)
Quarter: 2020Q1

REPORT INFORMATION
  Report Type: Spontaneous
  Country: US (occurrence: US)
  Receive Date: 20200106
  Receipt Date: 20200106
  Transmission Date: 20200409
  Serious: No
  Sender: FDA-Public Use
  Company Number: US-HORIZON-PEN-0001-2020

PATIENT
  Age: 82 Year
  Sex: Male

DRUGS (5)
  1. PENNSAID [Suspect]
     Active Substance: DICLOFENAC SODIUM
     Indication: PAIN
     Dosage: APPLY 2 PUMPS TO AFFECTED AREA BID PRN FOR PAIN
     Route: 061
     Dates: start: 20191230, end: 20191231
  2. DILTIAZEM. [Concomitant]
     Active Substance: DILTIAZEM
  3. TRAMADOL. [Concomitant]
     Active Substance: TRAMADOL
  4. LOSARTAN. [Concomitant]
     Active Substance: LOSARTAN
  5. SERTRALINE [Concomitant]
     Active Substance: SERTRALINE HYDROCHLORIDE

REACTIONS (3)
  - Abdominal pain upper [Unknown]
  - Nausea [Unknown]
  - Off label use [Unknown]

NARRATIVE: CASE EVENT DATE: 20191230
